FAERS Safety Report 8806070 (Version 1)
Quarter: 2012Q4

REPORT INFORMATION
  Report Type: 
  Country: US (occurrence: US)
  Receive Date: 20120925
  Receipt Date: 20120925
  Transmission Date: 20130627
  Serious: No
  Sender: FDA-Public Use
  Company Number: US-PFIZER INC-2012234183

PATIENT
  Age: 39 Year
  Sex: Female

DRUGS (1)
  1. FLECTOR [Suspect]
     Indication: INFLAMMATION
     Dosage: UNK, as needed
     Route: 062
     Dates: start: 2011, end: 2012

REACTIONS (2)
  - Drug ineffective [Unknown]
  - Product physical issue [Unknown]
